FAERS Safety Report 4396060-7 (Version None)
Quarter: 2004Q3

REPORT INFORMATION
  Report Type: 
  Country: None (occurrence: None)
  Receive Date: 20040708
  Receipt Date: 20040623
  Transmission Date: 20050211
  Serious: Yes (Other)
  Sender: FDA-Public Use
  Company Number: 2004-DE-03476GD

PATIENT
  Age: 67 Year
  Sex: Male

DRUGS (3)
  1. PRAMIPEXOLE (PRAMIPEXOLE DIHYDROCHLORIDE) [Suspect]
     Indication: PARKINSON'S DISEASE
     Dosage: 3.75 MG
  2. LEVODOPA (LEVODOPA) [Suspect]
     Indication: PARKINSON'S DISEASE
     Dosage: 1650 MG
  3. AMANTADINE (AMANTADINE) [Suspect]
     Indication: PARKINSON'S DISEASE
     Dosage: 200 MG

REACTIONS (1)
  - MOTOR DYSFUNCTION [None]
